FAERS Safety Report 8126192-9 (Version None)
Quarter: 2012Q1

REPORT INFORMATION
  Report Type: 
  Country: None (occurrence: None)
  Receive Date: 20120209
  Receipt Date: 20120206
  Transmission Date: 20120608
  Serious: Yes (Other)
  Sender: FDA-Public Use
  Company Number: PHEH2012US002433

PATIENT
  Sex: Female

DRUGS (5)
  1. CALCIUM [Concomitant]
  2. RECLAST [Suspect]
     Dosage: UNK UKN, UNK
     Route: 042
     Dates: start: 20120103
  3. VITAMINS NOS [Concomitant]
     Dosage: UNK UKN, UNK
  4. MUSCLE RELAXANTS [Concomitant]
     Dosage: UNK UKN, UNK
  5. ANTIBIOTICS [Concomitant]
     Dosage: UNK UKN, UNK

REACTIONS (3)
  - SINUSITIS [None]
  - PAIN IN JAW [None]
  - ORAL DISORDER [None]
